FAERS Safety Report 21223486 (Version 1)
Quarter: 2022Q3

REPORT INFORMATION
  Report Type: Spontaneous
  Country: CN (occurrence: CN)
  Receive Date: 20220817
  Receipt Date: 20220817
  Transmission Date: 20221026
  Serious: Yes (Other)
  Sender: FDA-Public Use
  Company Number: None

PATIENT
  Age: 17 Year
  Sex: Male
  Weight: 77 kg

DRUGS (14)
  1. CYCLOPHOSPHAMIDE [Suspect]
     Active Substance: CYCLOPHOSPHAMIDE
     Indication: Non-Hodgkin^s lymphoma
     Dosage: 0.56 G, Q12H, D1-3, HYPERCVAD A (5TH COURSE) REGIMEN CHEMOTHERAPY
     Route: 041
     Dates: start: 20220723, end: 20220725
  2. CYCLOPHOSPHAMIDE [Suspect]
     Active Substance: CYCLOPHOSPHAMIDE
     Indication: T-cell lymphoma stage II
  3. MESNA [Suspect]
     Active Substance: MESNA
     Indication: Prophylaxis
     Dosage: UNK
     Route: 065
     Dates: start: 202207
  4. EPIRUBICIN HYDROCHLORIDE [Suspect]
     Active Substance: EPIRUBICIN HYDROCHLORIDE
     Indication: Non-Hodgkin^s lymphoma
     Dosage: 140 MG, QD, D4, HYPERCVAD A (5TH COURSE) REGIMEN CHEMOTHERAPY
     Route: 041
     Dates: start: 20220726, end: 20220726
  5. EPIRUBICIN HYDROCHLORIDE [Suspect]
     Active Substance: EPIRUBICIN HYDROCHLORIDE
     Indication: T-cell lymphoma stage II
  6. VINDESINE SULFATE [Suspect]
     Active Substance: VINDESINE SULFATE
     Indication: Non-Hodgkin^s lymphoma
     Dosage: 4 MG, QD, D4, HYPERCVAD A (5TH COURSE) REGIMEN CHEMOTHERAPY
     Route: 042
     Dates: start: 20220726, end: 20220726
  7. VINDESINE SULFATE [Suspect]
     Active Substance: VINDESINE SULFATE
     Indication: T-cell lymphoma stage II
  8. DEXAMETHASONE [Suspect]
     Active Substance: DEXAMETHASONE
     Indication: Non-Hodgkin^s lymphoma
     Dosage: HYPERCVAD A (5TH COURSE) REGIMEN CHEMOTHERAPY
     Route: 065
     Dates: start: 20220723
  9. DEXAMETHASONE [Suspect]
     Active Substance: DEXAMETHASONE
     Indication: T-cell lymphoma stage II
  10. METHOTREXATE [Suspect]
     Active Substance: METHOTREXATE
     Indication: Non-Hodgkin^s lymphoma
     Dosage: HYPERCVAD A (5TH COURSE) REGIMEN CHEMOTHERAPY
     Route: 065
     Dates: start: 20220723
  11. METHOTREXATE [Suspect]
     Active Substance: METHOTREXATE
     Indication: T-cell lymphoma stage II
  12. CYTARABINE [Suspect]
     Active Substance: CYTARABINE
     Indication: Non-Hodgkin^s lymphoma
     Dosage: HYPERCVAD A (5TH COURSE) REGIMEN CHEMOTHERAPY
     Route: 065
     Dates: start: 20220723
  13. CYTARABINE [Suspect]
     Active Substance: CYTARABINE
     Indication: T-cell lymphoma stage II
  14. DOLASETRON [Concomitant]
     Active Substance: DOLASETRON
     Indication: Antiemetic supportive care
     Dosage: UNK
     Route: 065
     Dates: start: 202207

REACTIONS (1)
  - Myelosuppression [Recovering/Resolving]

NARRATIVE: CASE EVENT DATE: 20220730
